FAERS Safety Report 18315756 (Version 1)
Quarter: 2020Q3

REPORT INFORMATION
  Report Type: Report from Study
  Country: IN (occurrence: IN)
  Receive Date: 20200926
  Receipt Date: 20200926
  Transmission Date: 20201103
  Serious: Yes (Other)
  Sender: FDA-Public Use
  Company Number: PHHY2019IN096236

PATIENT
  Age: 67 Year
  Sex: Female

DRUGS (2)
  1. VYMADA [Suspect]
     Active Substance: SACUBITRIL\VALSARTAN
     Indication: CARDIAC FAILURE CHRONIC
  2. VYMADA [Suspect]
     Active Substance: SACUBITRIL\VALSARTAN
     Indication: CARDIAC FAILURE
     Dosage: 100 MG, BID (1/2 TAB BD)
     Route: 048
     Dates: start: 20190415

REACTIONS (5)
  - Wrong technique in product usage process [Unknown]
  - Cough [Unknown]
  - Nasopharyngitis [Unknown]
  - Product prescribing error [Unknown]
  - Syncope [Unknown]

NARRATIVE: CASE EVENT DATE: 20190415
